FAERS Safety Report 16483920 (Version 1)
Quarter: 2019Q3

REPORT INFORMATION
  Report Type: Spontaneous
  Country: US (occurrence: US)
  Receive Date: 20190625
  Receipt Date: 20190625
  Transmission Date: 20191004
  Serious: Yes (Disabling, Other)
  Sender: FDA-Public Use
  Company Number: None

PATIENT
  Age: 67 Year
  Sex: Female
  Weight: 99.9 kg

DRUGS (12)
  1. DORZOLAMIDE/TIMOLOL [Suspect]
     Active Substance: DORZOLAMIDE\TIMOLOL
  2. GARLIC OIL [Concomitant]
     Active Substance: GARLIC OIL
  3. LISINOPRIL. [Concomitant]
     Active Substance: LISINOPRIL
  4. MULTI-VITAMIN/MINERAL [Concomitant]
  5. LATANAPROST [Suspect]
     Active Substance: LATANOPROST
     Indication: GLAUCOMA
     Dosage: ?          QUANTITY:1 DROP(S);?
     Route: 047
     Dates: start: 20170630, end: 20190329
  6. IBANDRONATE [Concomitant]
     Active Substance: IBANDRONATE SODIUM
  7. CALCIUM W/D [Concomitant]
  8. PRAVASTATIN. [Concomitant]
     Active Substance: PRAVASTATIN
  9. CURCUMIN [Suspect]
     Active Substance: CURCUMIN
  10. COMBIGAN [Suspect]
     Active Substance: BRIMONIDINE TARTRATE\TIMOLOL MALEATE
     Indication: GLAUCOMA
     Dosage: ?          QUANTITY:1 DROP(S);?
     Route: 047
     Dates: start: 20170630, end: 20190329
  11. FISH OIL [Concomitant]
     Active Substance: FISH OIL
  12. DORZOLAMIDE [Suspect]
     Active Substance: DORZOLAMIDE

REACTIONS (5)
  - Eyelids pruritus [None]
  - Dry eye [None]
  - Eyelid margin crusting [None]
  - Cataract operation [None]
  - Swelling of eyelid [None]

NARRATIVE: CASE EVENT DATE: 20181101
